FAERS Safety Report 10592690 (Version 2)
Quarter: 2014Q4

REPORT INFORMATION
  Report Type: Spontaneous
  Country: JP (occurrence: None)
  Receive Date: 20141117
  Receipt Date: 20141202
  Transmission Date: 20150529
  Serious: Yes (Hospitalization)
  Sender: FDA-Public Use
  Company Number: AXC-2014-000691

PATIENT
  Age: 69 Year
  Sex: Male

DRUGS (1)
  1. URSODEOXYCHOLIC ACID (URSODEOXYCHOLIC ACID) UNKNOWN) [Suspect]
     Active Substance: URSODIOL
     Indication: PRODUCT USED FOR UNKNOWN INDICATION
     Route: 048

REACTIONS (1)
  - Pneumonia bacterial [None]
